FAERS Safety Report 9819338 (Version 1)
Quarter: 2014Q1

REPORT INFORMATION
  Report Type: Spontaneous
  Country: ZA (occurrence: ZA)
  Receive Date: 20140115
  Receipt Date: 20140115
  Transmission Date: 20141002
  Serious: Yes (Other)
  Sender: FDA-Public Use
  Company Number: ZA-PFIZER INC-2014010760

PATIENT
  Age: 56 Year
  Sex: Female

DRUGS (2)
  1. CHAMPIX [Suspect]
     Indication: SMOKING CESSATION THERAPY
     Dosage: 1 TABLET, 2X/DAY
     Route: 048
     Dates: start: 201305, end: 2013
  2. CHAMPIX [Suspect]
     Dosage: 2 TABLETS, 2X/DAY
     Route: 048
     Dates: start: 20140110

REACTIONS (1)
  - Tooth abscess [Unknown]
